FAERS Safety Report 7087211-4 (Version None)
Quarter: 2010Q4

REPORT INFORMATION
  Report Type: 
  Country: None (occurrence: None)
  Receive Date: 20101106
  Receipt Date: 20101101
  Transmission Date: 20110411
  Serious: No
  Sender: FDA-Public Use
  Company Number: US-WYE-H18463310

PATIENT
  Age: 81 Year
  Sex: Male

DRUGS (3)
  1. ADVIL [Suspect]
     Indication: MYALGIA
     Dosage: TWO TO FOUR TABLETS AS NEEDED UNDER PHYSICIAN'S ADVISE
     Route: 048
     Dates: start: 20001101
  2. NIFEDIPINE [Concomitant]
  3. ACETYLSALICYLIC ACID [Concomitant]

REACTIONS (1)
  - GINGIVAL BLEEDING [None]
